FAERS Safety Report 9565800 (Version 2)
Quarter: 2014Q1

REPORT INFORMATION
  Report Type: Spontaneous
  Country: IT (occurrence: IT)
  Receive Date: 20130930
  Receipt Date: 20140312
  Transmission Date: 20141002
  Serious: Yes (Other)
  Sender: FDA-Public Use
  Company Number: IT-GLAXOSMITHKLINE-B0925980A

PATIENT
  Age: 65 Year
  Sex: Male

DRUGS (7)
  1. AUGMENTIN [Suspect]
     Indication: BRONCHITIS
     Dosage: 3TAB PER DAY
     Route: 048
     Dates: start: 20130826, end: 20130902
  2. DELTACORTENE [Suspect]
     Indication: PRODUCT USED FOR UNKNOWN INDICATION
     Dosage: 25MG PER DAY
     Route: 048
  3. CLENIL [Suspect]
     Indication: PRODUCT USED FOR UNKNOWN INDICATION
     Route: 055
     Dates: start: 20130826, end: 20130902
  4. SILODOSIN [Concomitant]
     Indication: BENIGN PROSTATIC HYPERPLASIA
  5. SPIRIVA [Concomitant]
     Indication: CHRONIC OBSTRUCTIVE PULMONARY DISEASE
     Route: 055
  6. BREVA [Concomitant]
  7. MEPRAL [Concomitant]
     Route: 048

REACTIONS (1)
  - Fungal oesophagitis [Not Recovered/Not Resolved]
